FAERS Safety Report 8902706 (Version 2)
Quarter: 2012Q4

REPORT INFORMATION
  Report Type: 
  Country: IT (occurrence: IT)
  Receive Date: 20121112
  Receipt Date: 20121214
  Transmission Date: 20130627
  Serious: Yes (Hospitalization)
  Sender: FDA-Public Use
  Company Number: IT-JNJFOC-20121104479

PATIENT
  Age: 42 Year
  Sex: Female

DRUGS (1)
  1. PALEXIA [Suspect]
     Indication: SCIATICA
     Route: 048
     Dates: start: 20121026, end: 20121026

REACTIONS (3)
  - Liver disorder [Recovered/Resolved]
  - Somnolence [Recovered/Resolved]
  - Disorientation [Recovered/Resolved]
